FAERS Safety Report 8017658-0 (Version None)
Quarter: 2012Q1

REPORT INFORMATION
  Report Type: 
  Country: None (occurrence: None)
  Receive Date: 20120103
  Receipt Date: 20111221
  Transmission Date: 20120608
  Serious: Yes (Other)
  Sender: FDA-Public Use
  Company Number: CA-JNJFOC-20111210990

PATIENT
  Sex: Female
  Weight: 70 kg

DRUGS (2)
  1. REMICADE [Suspect]
     Indication: COLITIS ULCERATIVE
     Dosage: 5TH TREATMENT RECEIVED ON 21-DEC-2011
     Route: 042
     Dates: start: 20111221
  2. REMICADE [Suspect]
     Route: 042

REACTIONS (2)
  - OEDEMA PERIPHERAL [None]
  - HYPOAESTHESIA [None]
